FAERS Safety Report 4959798-6 (Version None)
Quarter: 2006Q1

REPORT INFORMATION
  Report Type: 
  Country: None (occurrence: None)
  Receive Date: 20060324
  Receipt Date: 20060313
  Transmission Date: 20060701
  Serious: Yes (Hospitalization, Other)
  Sender: FDA-Public Use
  Company Number: 2006025405

PATIENT
  Age: 48 Year
  Sex: Female

DRUGS (3)
  1. IRINOTECAN HCL [Suspect]
     Indication: BREAST CANCER METASTATIC
     Dates: start: 20051201
  2. EVISA (RALOXIFENE HYDROCHLORIDE) [Concomitant]
  3. AVASTIN [Concomitant]

REACTIONS (1)
  - CUTANEOUS VASCULITIS [None]
